FAERS Safety Report 11231372 (Version 2)
Quarter: 2015Q3

REPORT INFORMATION
  Report Type: Report from Study
  Country: DE (occurrence: DE)
  Receive Date: 20150701
  Receipt Date: 20150721
  Transmission Date: 20151125
  Serious: Yes (Hospitalization, Other)
  Sender: FDA-Public Use
  Company Number: DE-009507513-1506DEU011960

PATIENT
  Age: 49 Year
  Sex: Male
  Weight: 90 kg

DRUGS (5)
  1. BOCEPREVIR [Suspect]
     Active Substance: BOCEPREVIR
     Indication: HEPATITIS C
     Dosage: STRENGHT: 200 MG, 2400 MG DAILY, FREQUENCY: 4-4-4-0, STARTED DATE ALSO REPORTED AS 03-FEB-2012
     Route: 048
     Dates: start: 20120301, end: 20121014
  2. HEXAL (HEXACHLOROPHENE) [Concomitant]
     Indication: PAIN
     Dosage: 600 MG, QD
     Dates: start: 20120504, end: 20120506
  3. PEGINTRON [Suspect]
     Active Substance: PEGINTERFERON ALFA-2B
     Indication: HEPATITIS C
     Dosage: 150 MICROGRAM, QW
     Dates: start: 20120203, end: 201205
  4. REBETOL [Suspect]
     Active Substance: RIBAVIRIN
     Indication: HEPATITIS C
     Dosage: FREQUENCY: 3-0-4-0, 1400 MG DAILY (600 MG AND 800 MG)
     Dates: start: 20120203, end: 20130106
  5. PEGINTRON [Suspect]
     Active Substance: PEGINTERFERON ALFA-2B
     Indication: HEPATITIS C
     Dosage: 120 MICROGRAM, QW
     Dates: start: 201205, end: 20130106

REACTIONS (1)
  - Pancytopenia [Recovered/Resolved]

NARRATIVE: CASE EVENT DATE: 20120515
